FAERS Safety Report 11179560 (Version 2)
Quarter: 2015Q3

REPORT INFORMATION
  Report Type: Spontaneous
  Country: US (occurrence: US)
  Receive Date: 20150611
  Receipt Date: 20150708
  Transmission Date: 20151125
  Serious: Yes (Other)
  Sender: FDA-Public Use
  Company Number: US-AUROBINDO-AUR-APL-2015-05014

PATIENT
  Age: 68 Year
  Sex: Male

DRUGS (1)
  1. RIBAVIRIN. [Suspect]
     Active Substance: RIBAVIRIN
     Indication: CHRONIC HEPATITIS C
     Route: 065

REACTIONS (4)
  - Haemoglobin decreased [Unknown]
  - Tachycardia [Unknown]
  - Dyspnoea exertional [Unknown]
  - Anaemia [Unknown]
